FAERS Safety Report 23872549 (Version 1)
Quarter: 2024Q2

REPORT INFORMATION
  Report Type: Spontaneous
  Country: US (occurrence: US)
  Receive Date: 20240520
  Receipt Date: 20240520
  Transmission Date: 20240716
  Serious: No
  Sender: FDA-Public Use
  Company Number: US-BRISTOL-MYERS SQUIBB COMPANY-2024-074777

PATIENT
  Age: 58 Year
  Sex: Female
  Weight: 85.73 kg

DRUGS (2)
  1. REVLIMID [Suspect]
     Active Substance: LENALIDOMIDE
     Indication: Product used for unknown indication
  2. ASPIRIN [Concomitant]
     Active Substance: ASPIRIN
     Indication: Product used for unknown indication

REACTIONS (4)
  - Vulvovaginal rash [Not Recovered/Not Resolved]
  - Vaginal mucosal blistering [Recovering/Resolving]
  - Exposure via body fluid [Unknown]
  - Vaginal ulceration [Unknown]
